FAERS Safety Report 9341294 (Version 1)
Quarter: 2013Q2

REPORT INFORMATION
  Report Type: Spontaneous
  Country: US (occurrence: None)
  Receive Date: 20130610
  Receipt Date: 20130610
  Transmission Date: 20140414
  Serious: Yes (Other)
  Sender: FDA-Public Use
  Company Number: None

PATIENT
  Age: 60 Year
  Sex: Female
  Weight: 58 kg

DRUGS (1)
  1. EPIPEN [Suspect]
     Indication: ANAPHYLACTIC REACTION
     Route: 030
     Dates: start: 20130604, end: 20130604

REACTIONS (4)
  - Device failure [None]
  - Needle issue [None]
  - Injection site pain [None]
  - Injection site haemorrhage [None]
